FAERS Safety Report 5867244-3 (Version None)
Quarter: 2008Q3

REPORT INFORMATION
  Report Type: 
  Country: None (occurrence: None)
  Receive Date: 20080902
  Receipt Date: 20080826
  Transmission Date: 20090109
  Serious: Yes (Disabling, Other)
  Sender: FDA-Public Use
  Company Number: US-MERCK-0806USA08609

PATIENT
  Age: 56 Year
  Sex: Male
  Weight: 85 kg

DRUGS (12)
  1. ISENTRESS [Suspect]
     Indication: HIV INFECTION
     Route: 048
     Dates: start: 20071029
  2. TRUVADA [Concomitant]
     Indication: HIV INFECTION
     Route: 048
     Dates: start: 20050608
  3. COUMADIN [Concomitant]
     Indication: DEEP VEIN THROMBOSIS
     Route: 048
     Dates: start: 20041218
  4. ACYCLOVIR [Concomitant]
     Route: 048
  5. INVIRASE [Concomitant]
     Indication: HIV INFECTION
     Route: 048
     Dates: start: 20030117
  6. SUSTIVA [Concomitant]
     Indication: HIV INFECTION
     Route: 048
     Dates: start: 20030117
  7. NORVIR [Concomitant]
     Indication: HIV INFECTION
     Route: 048
     Dates: start: 20030117
  8. TRICOR [Concomitant]
     Route: 065
  9. MAXZIDE [Concomitant]
     Route: 048
  10. VICODIN [Concomitant]
     Route: 065
  11. TRAZODONE HYDROCHLORIDE [Concomitant]
     Route: 048
  12. VIAGRA [Concomitant]
     Route: 065

REACTIONS (5)
  - DIPLOPIA [None]
  - DIZZINESS [None]
  - FALL [None]
  - INCLUSION BODY MYOSITIS [None]
  - MUSCULAR WEAKNESS [None]
